FAERS Safety Report 23435774 (Version 1)
Quarter: 2024Q1

REPORT INFORMATION
  Report Type: Spontaneous
  Country: US (occurrence: US)
  Receive Date: 20240124
  Receipt Date: 20240124
  Transmission Date: 20240410
  Serious: No
  Sender: FDA-Public Use
  Company Number: US-SUN PHARMACEUTICAL INDUSTRIES LTD-2023R1-402491

PATIENT
  Sex: Female

DRUGS (1)
  1. LEVULAN KERASTICK [Suspect]
     Active Substance: AMINOLEVULINIC ACID HYDROCHLORIDE
     Indication: Hidradenitis
     Dosage: APPLY 1 STICK TO THE RIGHT AXILLARY REGION AND 1 TO THE LEFT. USE FOR PDT.
     Route: 065

REACTIONS (1)
  - Off label use [Unknown]
